FAERS Safety Report 5825995-0 (Version None)
Quarter: 2008Q3

REPORT INFORMATION
  Report Type: 
  Country: None (occurrence: None)
  Receive Date: 20080729
  Receipt Date: 20080721
  Transmission Date: 20090109
  Serious: Yes (Other)
  Sender: FDA-Public Use
  Company Number: DE-JNJCH-2008019184

PATIENT
  Sex: Male

DRUGS (1)
  1. NICORETTE [Suspect]
     Indication: SMOKING CESSATION THERAPY
     Dosage: TEXT:1 PATCH
     Route: 062

REACTIONS (4)
  - APPLICATION SITE URTICARIA [None]
  - CAUSTIC INJURY [None]
  - THERMAL BURN [None]
  - WOUND SECRETION [None]
